FAERS Safety Report 6057785-0 (Version None)
Quarter: 2009Q1

REPORT INFORMATION
  Report Type: 
  Country: None (occurrence: None)
  Receive Date: 20090129
  Receipt Date: 20090119
  Transmission Date: 20090719
  Serious: Yes (Other)
  Sender: FDA-Public Use
  Company Number: PHHY2009ZA01786

PATIENT
  Sex: Male

DRUGS (2)
  1. ZOMETA [Suspect]
     Dosage: UNK
     Dates: start: 20070501, end: 20080701
  2. PREDNISONE [Concomitant]

REACTIONS (1)
  - ABSCESS JAW [None]
